FAERS Safety Report 7095037-0 (Version None)
Quarter: 2010Q4

REPORT INFORMATION
  Report Type: 
  Country: None (occurrence: None)
  Receive Date: 20101111
  Receipt Date: 20101101
  Transmission Date: 20110411
  Serious: No
  Sender: FDA-Public Use
  Company Number: US-BIOGENIDEC-2010BI038910

PATIENT
  Age: 20 Year
  Sex: Female

DRUGS (2)
  1. TYSABRI [Suspect]
     Indication: MULTIPLE SCLEROSIS
     Route: 042
     Dates: start: 20061124, end: 20071127
  2. TYSABRI [Suspect]
     Route: 042
     Dates: start: 20100907

REACTIONS (2)
  - DECREASED APPETITE [None]
  - NAUSEA [None]
